FAERS Safety Report 15793737 (Version 1)
Quarter: 2019Q1

REPORT INFORMATION
  Report Type: Spontaneous
  Country: US (occurrence: US)
  Receive Date: 20190105
  Receipt Date: 20190105
  Transmission Date: 20190417
  Serious: Yes (Disabling)
  Sender: FDA-Public Use
  Company Number: None

PATIENT
  Age: 36 Year
  Sex: Female
  Weight: 74 kg

DRUGS (4)
  1. VALPROATO [Concomitant]
     Active Substance: VALPROATE SODIUM
  2. QUETIAPINE. [Concomitant]
     Active Substance: QUETIAPINE
  3. HYDROXYZINE [Suspect]
     Active Substance: HYDROXYZINE HYDROCHLORIDE
  4. ESCITALOPRAM [Concomitant]
     Active Substance: ESCITALOPRAM OXALATE

REACTIONS (4)
  - Gait disturbance [None]
  - Tachycardia [None]
  - Feeling abnormal [None]
  - Nightmare [None]

NARRATIVE: CASE EVENT DATE: 20181222
